FAERS Safety Report 7935326-8 (Version None)
Quarter: 2011Q4

REPORT INFORMATION
  Report Type: 
  Country: None (occurrence: None)
  Receive Date: 20111122
  Receipt Date: 20111118
  Transmission Date: 20120403
  Serious: Yes (Hospitalization)
  Sender: FDA-Public Use
  Company Number: US-GILEAD-2011-0046545

PATIENT
  Sex: Male

DRUGS (1)
  1. LETAIRIS [Suspect]
     Indication: PULMONARY ARTERIAL HYPERTENSION
     Dosage: 5 MG, UNK
     Route: 048
     Dates: start: 20111104

REACTIONS (5)
  - CHEST PAIN [None]
  - BLOOD CREATININE INCREASED [None]
  - WHEEZING [None]
  - CARDIAC FAILURE CONGESTIVE [None]
  - BLOOD POTASSIUM INCREASED [None]
